FAERS Safety Report 14181526 (Version 1)
Quarter: 2017Q4

REPORT INFORMATION
  Report Type: Spontaneous
  Country: US (occurrence: US)
  Receive Date: 20171111
  Receipt Date: 20171111
  Transmission Date: 20180321
  Serious: Yes (Life-Threatening)
  Sender: FDA-Public Use
  Company Number: None

PATIENT
  Age: 58 Year
  Sex: Female
  Weight: 81 kg

DRUGS (7)
  1. ASA [Concomitant]
     Active Substance: ASPIRIN
  2. MYFORTIC [Concomitant]
     Active Substance: MYCOPHENOLATE SODIUM
  3. FAMOTIDINE. [Suspect]
     Active Substance: FAMOTIDINE
     Indication: GASTROOESOPHAGEAL REFLUX DISEASE
     Dosage: ?          QUANTITY:1 TABLET(S);?
     Route: 048
  4. VITAMIN C [Concomitant]
     Active Substance: ASCORBIC ACID
  5. RAPPAMUNE [Concomitant]
  6. PREDNISONE. [Concomitant]
     Active Substance: PREDNISONE
  7. BUMEX [Concomitant]
     Active Substance: BUMETANIDE

REACTIONS (11)
  - Dizziness [None]
  - Headache [None]
  - Therapy change [None]
  - Oxygen saturation decreased [None]
  - Blood pressure increased [None]
  - Hyperhidrosis [None]
  - Presyncope [None]
  - Speech disorder [None]
  - Mental impairment [None]
  - Heart rate decreased [None]
  - Heart rate increased [None]

NARRATIVE: CASE EVENT DATE: 20171107
